FAERS Safety Report 24182016 (Version 1)
Quarter: 2024Q3

REPORT INFORMATION
  Report Type: Spontaneous
  Country: US (occurrence: US)
  Receive Date: 20240807
  Receipt Date: 20240807
  Transmission Date: 20241017
  Serious: Yes (Death)
  Sender: CHEPLAPHARM
  Company Number: US-CHEPLA-2024010091

PATIENT
  Age: 94 Year
  Sex: Female

DRUGS (1)
  1. CAPECITABINE [Suspect]
     Active Substance: CAPECITABINE
     Indication: Pancreatic carcinoma
     Dosage: FREQUENCY: TAKE 1 TABLET BY MOUTH 2 TIMES A DAY FOR 14 DAYS ON AND 7 DAYS OFF  OF A 21-DAY CYCLE
     Route: 048
     Dates: start: 202308

REACTIONS (2)
  - Cardiac failure [Fatal]
  - Dementia Alzheimer^s type [Fatal]

NARRATIVE: CASE EVENT DATE: 20240623
